FAERS Safety Report 7597992-9 (Version None)
Quarter: 2011Q3

REPORT INFORMATION
  Report Type: 
  Country: None (occurrence: None)
  Receive Date: 20110708
  Receipt Date: 20110630
  Transmission Date: 20111222
  Serious: Yes (Hospitalization, Disabling)
  Sender: FDA-Public Use
  Company Number: GB-PFIZER INC-GB-WYE-G06452110

PATIENT
  Age: 85 Year
  Sex: Female

DRUGS (9)
  1. ISOSORBIDE MONONITRATE [Interacting]
     Indication: ANGINA PECTORIS
     Dosage: UNKNOWN
     Route: 065
  2. ALPRENOLOL HYDROCHLORIDE [Concomitant]
     Route: 065
  3. FUROSEMIDE [Concomitant]
     Route: 065
  4. NITROGLYCERIN [Concomitant]
     Route: 065
  5. PREMARIN [Suspect]
     Indication: OFF LABEL USE
     Dosage: DOSE AND FREQUENCY UNSPECIFIED
     Route: 065
     Dates: start: 20100625, end: 20100716
  6. SIMVASTATIN [Concomitant]
     Indication: BLOOD CHOLESTEROL INCREASED
     Route: 065
  7. PREMARIN [Interacting]
     Indication: VAGINAL HAEMORRHAGE
  8. ASPIRIN [Concomitant]
     Route: 065
  9. LANSOPRAZOLE [Concomitant]
     Indication: ABDOMINAL SYMPTOM
     Route: 065

REACTIONS (5)
  - ANGINA PECTORIS [None]
  - CONDITION AGGRAVATED [None]
  - FALL [None]
  - DRUG INTERACTION [None]
  - MALAISE [None]
